FAERS Safety Report 18405247 (Version 1)
Quarter: 2020Q4

REPORT INFORMATION
  Report Type: Spontaneous
  Country: AT (occurrence: AT)
  Receive Date: 20201020
  Receipt Date: 20201020
  Transmission Date: 20210114
  Serious: Yes (Life-Threatening, Hospitalization)
  Sender: FDA-Public Use
  Company Number: AT-STRIDES ARCOLAB LIMITED-2020SP012439

PATIENT
  Age: 44 Year
  Sex: Female

DRUGS (4)
  1. IOMERON [Concomitant]
     Active Substance: IOMEPROL
     Indication: RADICULAR PAIN
     Dosage: UNK
     Route: 065
  2. XYLANAEST [Concomitant]
     Active Substance: LIDOCAINE HYDROCHLORIDE
     Indication: LOCAL ANAESTHESIA
     Dosage: UNK
     Route: 065
  3. TRIAMCINOLONE ACETONIDE. [Suspect]
     Active Substance: TRIAMCINOLONE ACETONIDE
     Indication: RADICULAR PAIN
     Dosage: 1 MILLILITER (10MG), SUSPENSION
     Route: 065
  4. BUCAIN [Concomitant]
     Indication: RADICULAR PAIN
     Dosage: UNK
     Route: 065

REACTIONS (8)
  - Urinary incontinence [Unknown]
  - Off label use [Unknown]
  - Myelopathy [Recovered/Resolved]
  - Quadriparesis [Recovered/Resolved]
  - Respiratory distress [Recovered/Resolved]
  - Spinal cord infarction [Recovered/Resolved]
  - Anal incontinence [Unknown]
  - Embolism [Unknown]
